FAERS Safety Report 13877624 (Version 1)
Quarter: 2017Q3

REPORT INFORMATION
  Report Type: Report from Study
  Country: US (occurrence: US)
  Receive Date: 20170817
  Receipt Date: 20170817
  Transmission Date: 20171127
  Serious: Yes (Other)
  Sender: FDA-Public Use
  Company Number: US-EMD SERONO-E2B_80078589

PATIENT
  Sex: Female

DRUGS (1)
  1. REBIF [Suspect]
     Active Substance: INTERFERON BETA-1A
     Indication: MULTIPLE SCLEROSIS
     Route: 058
     Dates: start: 20170428, end: 201708

REACTIONS (6)
  - Dizziness [Not Recovered/Not Resolved]
  - Suicidal ideation [Recovering/Resolving]
  - Depressed mood [Unknown]
  - Post-traumatic stress disorder [Not Recovered/Not Resolved]
  - Suicide attempt [Unknown]
  - Anger [Unknown]
